FAERS Safety Report 6385180-3 (Version None)
Quarter: 2009Q4

REPORT INFORMATION
  Report Type: 
  Country: None (occurrence: None)
  Receive Date: 20091002
  Receipt Date: 20080818
  Transmission Date: 20100525
  Serious: No
  Sender: FDA-Public Use
  Company Number: US-ASTRAZENECA-2006UW28343

PATIENT
  Age: 60 Year
  Sex: Female
  Weight: 66.7 kg

DRUGS (11)
  1. ARIMIDEX [Suspect]
     Route: 048
     Dates: start: 20060401
  2. DIOVAN [Concomitant]
  3. INDERAL [Concomitant]
  4. HYDROCHLOROTHIAZIDE [Concomitant]
  5. IMITREX [Concomitant]
  6. ATENOLOL [Concomitant]
  7. BENICAR [Concomitant]
  8. ADVIL [Concomitant]
  9. TYLENOL (CAPLET) [Concomitant]
  10. FOSAMAX [Concomitant]
  11. BROMELAIN [Concomitant]

REACTIONS (4)
  - ARTHRALGIA [None]
  - CHILLS [None]
  - HOT FLUSH [None]
  - JOINT STIFFNESS [None]
